FAERS Safety Report 7310034-5 (Version None)
Quarter: 2011Q1

REPORT INFORMATION
  Report Type: 
  Country: None (occurrence: None)
  Receive Date: 20110224
  Receipt Date: 20110210
  Transmission Date: 20110831
  Serious: Yes (Other)
  Sender: FDA-Public Use
  Company Number: PHHY2010JP78488

PATIENT
  Sex: Male

DRUGS (5)
  1. THYRADIN [Concomitant]
     Dosage: 50 UG, UNK
     Route: 048
     Dates: start: 20100501
  2. INTERFERON ALFA [Concomitant]
     Indication: METASTATIC RENAL CELL CARCINOMA
     Dosage: 3000000 IU, UNK
     Route: 048
     Dates: start: 20090123, end: 20090304
  3. SORAFENIB TOSILATE [Concomitant]
     Indication: METASTATIC RENAL CELL CARCINOMA
     Dosage: 400 MG, UNK
     Route: 048
     Dates: start: 20090306, end: 20090808
  4. AFINITOR [Suspect]
     Indication: METASTATIC RENAL CELL CARCINOMA
     Dosage: 10 MG, DAILY
     Route: 048
     Dates: start: 20100929, end: 20101101
  5. SUNITINIB MALATE [Concomitant]
     Indication: METASTATIC RENAL CELL CARCINOMA
     Dosage: 25 MG, UNK
     Route: 048
     Dates: start: 20090821, end: 20100901

REACTIONS (1)
  - NEOPLASM MALIGNANT [None]
